FAERS Safety Report 21806502 (Version 1)
Quarter: 2023Q1

REPORT INFORMATION
  Report Type: Spontaneous
  Country: IT (occurrence: IT)
  Receive Date: 20230102
  Receipt Date: 20230102
  Transmission Date: 20230417
  Serious: Yes (Hospitalization)
  Sender: FDA-Public Use
  Company Number: None

PATIENT
  Age: 10 Year
  Sex: Male
  Weight: 57 kg

DRUGS (1)
  1. RISPERIDONE [Suspect]
     Active Substance: RISPERIDONE
     Indication: Autism spectrum disorder
     Dosage: 4 MG (FIRST AND ONLY ADMINISTRATION WITH A DOSE EQUAL TO 16 TIMES THE THERAPEUTIC DOSE (4 MG INSTEAD
     Route: 048
     Dates: start: 20221220, end: 20221220

REACTIONS (3)
  - Sopor [Recovering/Resolving]
  - Tremor [Recovered/Resolved]
  - Incorrect dosage administered [Recovering/Resolving]

NARRATIVE: CASE EVENT DATE: 20221220
